FAERS Safety Report 15506652 (Version 1)
Quarter: 2018Q4

REPORT INFORMATION
  Report Type: Spontaneous
  Country: JP (occurrence: JP)
  Receive Date: 20181016
  Receipt Date: 20181016
  Transmission Date: 20190205
  Serious: Yes (Hospitalization)
  Sender: FDA-Public Use
  Company Number: JP-SA-2018SA171613

PATIENT
  Age: 69 Year
  Sex: Female

DRUGS (51)
  1. FOLIC ACID. [Concomitant]
     Active Substance: FOLIC ACID
     Indication: PRODUCT USED FOR UNKNOWN INDICATION
     Dosage: 1 DF, QD; AFTER BREAKFAST; FOR 2 DAYS; ON WEDNESDAY
     Route: 048
     Dates: start: 20180718
  2. FOLIC ACID. [Concomitant]
     Active Substance: FOLIC ACID
     Dosage: 1 DF, QD; AFTER BREAKFAST; FOR 2 DAYS; ON THURSDAY
     Route: 048
     Dates: start: 20180830
  3. FLUITRAN [Concomitant]
     Active Substance: TRICHLORMETHIAZIDE
     Dosage: 1 DF, QD
     Route: 048
     Dates: start: 20180810
  4. PREDONINE [PREDNISOLONE ACETATE] [Concomitant]
     Dosage: 1.5 TABLETS AFTER BREAKFAST, 0.5 TABLETS AFTER DINNER (GIVEN AFTER CUT IN HALF); TWICE A DAY; FOR 14
     Route: 048
     Dates: start: 20180810
  5. PREDONINE [PREDNISOLONE ACETATE] [Concomitant]
     Dosage: 1.5 TABLETS AFTER BREAKFAST, 0.5 TABLETS AFTER DINNER (GIVEN AFTER CUT IN HALF); TWICE A DAY; FOR 28
     Route: 048
     Dates: start: 20180907
  6. BAKTAR [Concomitant]
     Active Substance: SULFAMETHOXAZOLE\TRIMETHOPRIM
     Indication: PRODUCT USED FOR UNKNOWN INDICATION
     Dosage: 1 DF
     Route: 048
     Dates: start: 20180716
  7. ALENDRONATE SODIUM HYDRATE [Concomitant]
     Active Substance: ALENDRONATE SODIUM
     Dosage: 1 DF
     Route: 048
     Dates: start: 201809
  8. BETAHISTINE MESILATE [Concomitant]
     Active Substance: BETAHISTINE MESILATE
     Indication: PRODUCT USED FOR UNKNOWN INDICATION
     Dosage: 3 DF, TID AFTER EACH MEAL; FOR 14 DAYS
     Route: 048
  9. LOXONIN [Concomitant]
     Active Substance: LOXOPROFEN SODIUM
     Indication: PRODUCT USED FOR UNKNOWN INDICATION
     Dosage: 3 SHEETS, QD (10 PACKAGES WERE GIVEN.)
     Route: 062
     Dates: start: 20180824
  10. KEVZARA [Suspect]
     Active Substance: SARILUMAB
     Indication: RHEUMATOID ARTHRITIS
     Dosage: 200 MG, QOW
     Route: 058
     Dates: start: 20180713, end: 20180810
  11. FOLIC ACID. [Concomitant]
     Active Substance: FOLIC ACID
     Dosage: 1 DF, QD; AFTER BREAKFAST; FOR 2 DAYS; ON THURSDAY
     Route: 048
     Dates: start: 20180816
  12. FLUITRAN [Concomitant]
     Active Substance: TRICHLORMETHIAZIDE
     Dosage: 1 DF, QD
     Route: 048
     Dates: start: 20180824
  13. GENTAMICIN SULFATE. [Concomitant]
     Active Substance: GENTAMICIN SULFATE
     Indication: PRODUCT USED FOR UNKNOWN INDICATION
     Dosage: APPLICATION, BID (1 BOTTLE WAS GIVEN.)
     Route: 061
  14. KEVZARA [Suspect]
     Active Substance: SARILUMAB
     Dosage: 200 MG
     Route: 058
     Dates: start: 20180623, end: 20180623
  15. METHOTREXATE. [Suspect]
     Active Substance: METHOTREXATE
     Dosage: 1 DF, QD; AFTER BREAKFAST; FOR 2 DAYS; ON TUESDAY
     Route: 048
     Dates: start: 20180828
  16. MYSLEE-[LOCAL-LOCAL JAPAN] [Concomitant]
     Indication: PRODUCT USED FOR UNKNOWN INDICATION
     Dosage: 1 DF, QD
     Route: 048
     Dates: start: 20180713
  17. BAKTAR [Concomitant]
     Active Substance: SULFAMETHOXAZOLE\TRIMETHOPRIM
     Dosage: 1 DF, AFTER BREAKFAST (MONDAY, WEDNESDAY, FRIDAY), FOR 12 DAYS
     Route: 048
     Dates: start: 20180910
  18. METHOTREXATE. [Suspect]
     Active Substance: METHOTREXATE
     Indication: RHEUMATOID ARTHRITIS
     Dosage: 2 DF, BID; AFTER BREAKFAST AND DINNER; FOR 2 DAYS; ON MONDAY
     Route: 048
     Dates: start: 20180716
  19. RABEPRAZOLE SODIUM. [Concomitant]
     Active Substance: RABEPRAZOLE SODIUM
     Dosage: 1 DF, QD
     Route: 048
     Dates: start: 20180824
  20. MYSLEE-[LOCAL-LOCAL JAPAN] [Concomitant]
     Dosage: 5 OR 10 MG SELF-ADJUST (CUT IN HALF), QD BEFORE BEDTIME; FOR 14 DAYS
     Route: 048
     Dates: start: 20180810
  21. CRESTOR OD [Concomitant]
     Active Substance: ROSUVASTATIN CALCIUM
     Dosage: 1 DF, QD
     Route: 048
     Dates: start: 20180727
  22. PREDONINE [PREDNISOLONE ACETATE] [Concomitant]
     Indication: PRODUCT USED FOR UNKNOWN INDICATION
     Dosage: 1.5 TABLETS AFTER BREAKFAST, 0.5 TABLETS AFTER DINNER (GIVEN AFTER CUT IN HALF); TWICE A DAY; FOR 14
     Route: 048
     Dates: start: 20180713
  23. BAKTAR [Concomitant]
     Active Substance: SULFAMETHOXAZOLE\TRIMETHOPRIM
     Dosage: 1 DF
     Route: 048
     Dates: start: 20180730
  24. METHOTREXATE. [Suspect]
     Active Substance: METHOTREXATE
     Dosage: 1 DF, BID; AFTER BREAKFAST AND DINNER; FOR 2 DAYS; ON TUESDAY
     Route: 048
     Dates: start: 20180731
  25. METHOTREXATE. [Suspect]
     Active Substance: METHOTREXATE
     Dosage: 1 DF, QD; AFTER BREAKFAST; FOR 2 DAYS; ON TUESDAY
     Route: 048
     Dates: start: 20180814
  26. MYSLEE-[LOCAL-LOCAL JAPAN] [Concomitant]
     Dosage: 5 OR 10 MG SELF-ADJUST (CUT IN HALF), QD BEFORE BEDTIME; FOR 28 DAYS
     Route: 048
     Dates: start: 20180907
  27. FLUITRAN [Concomitant]
     Active Substance: TRICHLORMETHIAZIDE
     Indication: PRODUCT USED FOR UNKNOWN INDICATION
     Dosage: 1 DF, QD
     Route: 048
     Dates: start: 20180713
  28. RABEPRAZOLE SODIUM. [Concomitant]
     Active Substance: RABEPRAZOLE SODIUM
     Indication: PRODUCT USED FOR UNKNOWN INDICATION
     Dosage: 1 DF, QD
     Route: 048
     Dates: start: 20180713
  29. MYSLEE-[LOCAL-LOCAL JAPAN] [Concomitant]
     Dosage: 5 OR 10 MG SELF-ADJUST (CUT IN HALF), QD BEFORE BEDTIME; FOR 14 DAYS
     Route: 048
     Dates: start: 20180727
  30. CRESTOR OD [Concomitant]
     Active Substance: ROSUVASTATIN CALCIUM
     Indication: PRODUCT USED FOR UNKNOWN INDICATION
     Dosage: 1 DF, QD
     Route: 048
     Dates: start: 20180713
  31. CRESTOR OD [Concomitant]
     Active Substance: ROSUVASTATIN CALCIUM
     Dosage: 1 DF, QD
     Route: 048
     Dates: start: 20180810
  32. CRESTOR OD [Concomitant]
     Active Substance: ROSUVASTATIN CALCIUM
     Dosage: 1 DF, QD
     Route: 048
     Dates: start: 20180824
  33. CRESTOR OD [Concomitant]
     Active Substance: ROSUVASTATIN CALCIUM
     Dosage: 1 DF, QD
     Route: 048
     Dates: start: 20180907
  34. FLUITRAN [Concomitant]
     Active Substance: TRICHLORMETHIAZIDE
     Dosage: 1 DF, QD
     Route: 048
     Dates: start: 20180727
  35. PREDONINE [PREDNISOLONE ACETATE] [Concomitant]
     Dosage: 1.5 TABLETS AFTER BREAKFAST, 0.5 TABLETS AFTER DINNER (GIVEN AFTER CUT IN HALF); TWICE A DAY; FOR 14
     Route: 048
     Dates: start: 20180727
  36. PREDONINE [PREDNISOLONE ACETATE] [Concomitant]
     Dosage: 1.5 TABLETS AFTER BREAKFAST, 0.5 TABLETS AFTER DINNER (GIVEN AFTER CUT IN HALF); TWICE A DAY; FOR 14
     Route: 048
     Dates: start: 20180824
  37. ALENDRONATE SODIUM HYDRATE [Concomitant]
     Active Substance: ALENDRONATE SODIUM
     Dosage: 1 DF
     Route: 048
     Dates: start: 20180811
  38. LOXONIN [Concomitant]
     Active Substance: LOXOPROFEN SODIUM
     Dosage: 3 DF, QD
     Route: 062
     Dates: start: 20180907
  39. FOLIC ACID. [Concomitant]
     Active Substance: FOLIC ACID
     Dosage: 1 DF, QD; AFTER BREAKFAST; FOR 2 DAYS; ON THURSDAY
     Route: 048
     Dates: start: 20180802
  40. FOLIC ACID. [Concomitant]
     Active Substance: FOLIC ACID
     Dosage: 1 DF, QD; AFTER BREAKFAST; FOR 4 DAYS; ON THURSDAY
     Route: 048
     Dates: start: 20180913
  41. RABEPRAZOLE SODIUM. [Concomitant]
     Active Substance: RABEPRAZOLE SODIUM
     Dosage: 1 DF, QD
     Route: 048
     Dates: start: 20180727
  42. RABEPRAZOLE SODIUM. [Concomitant]
     Active Substance: RABEPRAZOLE SODIUM
     Dosage: 1 DF, QD
     Route: 048
     Dates: start: 20180810
  43. RABEPRAZOLE SODIUM. [Concomitant]
     Active Substance: RABEPRAZOLE SODIUM
     Dosage: 1 DF, QD
     Route: 048
     Dates: start: 20180907
  44. FLUITRAN [Concomitant]
     Active Substance: TRICHLORMETHIAZIDE
     Dosage: 1 DF, QD; AFTER BREAKFAST; FOR 28 DAYS
     Route: 048
     Dates: start: 20180907
  45. BAKTAR [Concomitant]
     Active Substance: SULFAMETHOXAZOLE\TRIMETHOPRIM
     Dosage: 1 DF
     Route: 048
     Dates: start: 20180813
  46. BAKTAR [Concomitant]
     Active Substance: SULFAMETHOXAZOLE\TRIMETHOPRIM
     Dosage: 1 DF
     Route: 048
     Dates: start: 20180827
  47. ALENDRONATE SODIUM HYDRATE [Concomitant]
     Active Substance: ALENDRONATE SODIUM
     Dosage: 1 DF
     Route: 048
     Dates: start: 20180728
  48. METHOTREXATE. [Suspect]
     Active Substance: METHOTREXATE
     Dosage: 1.5 TABLETS AFTER BREAKFAST, 0.5 TABLETS AFTER DINNER (CUT IN HALF); TWICE A DAY; ON TUESDAY; FOR 4
     Route: 048
     Dates: start: 20180911
  49. MYSLEE-[LOCAL-LOCAL JAPAN] [Concomitant]
     Dosage: 5 OR 10 MG SELF-ADJUST (CUT IN HALF), QD BEFORE BEDTIME; FOR 14 DAYS
     Route: 048
     Dates: start: 20180824
  50. ALENDRONATE SODIUM HYDRATE [Concomitant]
     Active Substance: ALENDRONATE SODIUM
     Indication: PRODUCT USED FOR UNKNOWN INDICATION
     Dosage: 1 DF, EACH SATURDAY ON AWAKENING; FOR 2 DAYS
     Route: 048
     Dates: start: 20180714
  51. ALENDRONATE SODIUM HYDRATE [Concomitant]
     Active Substance: ALENDRONATE SODIUM
     Dosage: 1 DF
     Route: 048
     Dates: start: 20180825

REACTIONS (6)
  - Pyrexia [Recovered/Resolved]
  - Chills [Recovered/Resolved]
  - Malaise [Recovering/Resolving]
  - Psoriasis [Recovering/Resolving]
  - Malaise [Unknown]
  - Inflammation [Recovering/Resolving]

NARRATIVE: CASE EVENT DATE: 20180623
